FAERS Safety Report 12999055 (Version 3)
Quarter: 2017Q1

REPORT INFORMATION
  Report Type: Report from Study
  Country: AT (occurrence: AT)
  Receive Date: 20161205
  Receipt Date: 20170215
  Transmission Date: 20170428
  Serious: Yes (Hospitalization, Other)
  Sender: FDA-Public Use
  Company Number: AT-INCYTE CORPORATION-2016IN001938

PATIENT
  Age: 52 Year
  Sex: Male
  Weight: 79 kg

DRUGS (1)
  1. JAKAVI [Suspect]
     Active Substance: RUXOLITINIB
     Indication: MYELOFIBROSIS
     Dosage: 40 MG, UNK
     Route: 048
     Dates: start: 20131112

REACTIONS (7)
  - Infection [Recovered/Resolved]
  - Febrile infection [Recovered/Resolved]
  - Pain in extremity [Recovered/Resolved]
  - Abdominal pain upper [Recovered/Resolved]
  - Ischaemic enteritis [Recovered/Resolved]
  - Inflammatory bowel disease [Unknown]
  - Pneumonia [Recovered/Resolved]

NARRATIVE: CASE EVENT DATE: 2014
